FAERS Safety Report 9308660 (Version 2)
Quarter: 2013Q2

REPORT INFORMATION
  Report Type: Spontaneous
  Country: CH (occurrence: CH)
  Receive Date: 20130524
  Receipt Date: 20130620
  Transmission Date: 20140414
  Serious: Yes (Other)
  Sender: FDA-Public Use
  Company Number: CH-ELI_LILLY_AND_COMPANY-CH201305006180

PATIENT
  Age: 77 Year
  Sex: Male

DRUGS (11)
  1. PEMETREXED [Suspect]
     Indication: PLEURAL MESOTHELIOMA MALIGNANT
     Dosage: 500 MG/M2, OTHER
  2. PEMETREXED [Suspect]
     Dosage: 420 MG/M2, OTHER
  3. PHENPROCOUMON [Concomitant]
  4. ACETYLSALICYLIC ACID [Concomitant]
  5. AMIODARONE [Concomitant]
  6. RAMIPRIL [Concomitant]
  7. TORASEMIDE [Concomitant]
  8. ESOMEPRAZOLE [Concomitant]
  9. POTASSIUM CHLORIDE [Concomitant]
  10. FOLIC ACID [Concomitant]
  11. CHOLECALCIFEROL [Concomitant]

REACTIONS (6)
  - Enteritis [Recovered/Resolved]
  - Febrile neutropenia [Recovered/Resolved]
  - Skin hyperpigmentation [Not Recovered/Not Resolved]
  - Weight decreased [None]
  - Haemoglobin decreased [None]
  - Platelet count decreased [None]
